FAERS Safety Report 8927341 (Version 2)
Quarter: 2013Q1

REPORT INFORMATION
  Report Type: Spontaneous
  Country: FR (occurrence: FR)
  Receive Date: 20121127
  Receipt Date: 20130102
  Transmission Date: 20140127
  Serious: Yes (Hospitalization, Other)
  Sender: FDA-Public Use
  Company Number: PHHY2012FR105956

PATIENT
  Age: 72 Year
  Sex: Female

DRUGS (2)
  1. FRACTAL [Suspect]
     Dosage: 90  MG QD
     Route: 048
     Dates: end: 20110321
  2. LEVOTHYROX [Concomitant]

REACTIONS (6)
  - Chest pain [Recovered/Resolved]
  - Viral pericarditis [Unknown]
  - Systemic inflammatory response syndrome [Recovering/Resolving]
  - Lupus-like syndrome [Unknown]
  - Antinuclear antibody positive [Unknown]
  - Atrial fibrillation [Unknown]
